FAERS Safety Report 11088657 (Version 2)
Quarter: 2015Q2

REPORT INFORMATION
  Report Type: Report from Study
  Country: US (occurrence: US)
  Receive Date: 20150504
  Receipt Date: 20150528
  Transmission Date: 20150821
  Serious: Yes (Hospitalization)
  Sender: FDA-Public Use
  Company Number: US-ACTELION-A-NJ2015-117148

PATIENT
  Age: 86 Year
  Sex: Female

DRUGS (14)
  1. HYDROXYZINE [Concomitant]
     Active Substance: HYDROXYZINE\HYDROXYZINE HYDROCHLORIDE
  2. ELIDEL [Concomitant]
     Active Substance: PIMECROLIMUS
  3. TYVASO [Concomitant]
     Active Substance: TREPROSTINIL
  4. OMEPRAZOLE. [Concomitant]
     Active Substance: OMEPRAZOLE
  5. ACETAMINOPHEN. [Concomitant]
     Active Substance: ACETAMINOPHEN
  6. LASIX [Concomitant]
     Active Substance: FUROSEMIDE
     Dosage: 20 MG, UNK
  7. LETAIRIS [Concomitant]
     Active Substance: AMBRISENTAN
  8. MACITENTAN [Suspect]
     Active Substance: MACITENTAN
     Indication: PULMONARY ARTERIAL HYPERTENSION
     Dosage: 10 MG, QD
     Route: 048
     Dates: start: 20150226
  9. SILDENAFIL. [Concomitant]
     Active Substance: SILDENAFIL
  10. AMLODIPINE [Concomitant]
     Active Substance: AMLODIPINE BESYLATE
  11. VITAMIN D3 [Concomitant]
     Active Substance: CHOLECALCIFEROL
  12. CARBOXYMETHYLCELLULOSE SODIUM. [Concomitant]
     Active Substance: CARBOXYMETHYLCELLULOSE SODIUM
  13. LIDODERM [Concomitant]
     Active Substance: LIDOCAINE
  14. K-TAB [Concomitant]
     Active Substance: POTASSIUM CHLORIDE

REACTIONS (16)
  - Cardiomegaly [Unknown]
  - Oxygen saturation decreased [Unknown]
  - Urinary tract infection [Unknown]
  - Fall [Recovered/Resolved]
  - Pleural effusion [Unknown]
  - Pneumonia [Unknown]
  - Pneumothorax [Unknown]
  - Respiratory failure [Unknown]
  - Back pain [Recovered/Resolved]
  - Condition aggravated [Unknown]
  - Hyponatraemia [Unknown]
  - Spinal fracture [Recovered/Resolved]
  - Headache [Unknown]
  - Pancreatic cyst [Unknown]
  - Dyspnoea [Unknown]
  - Cardiac failure congestive [Unknown]

NARRATIVE: CASE EVENT DATE: 20150330
